FAERS Safety Report 23474999 (Version 1)
Quarter: 2024Q1

REPORT INFORMATION
  Report Type: Report from Study
  Country: US (occurrence: US)
  Receive Date: 20240204
  Receipt Date: 20240204
  Transmission Date: 20240410
  Serious: Yes (Other)
  Sender: FDA-Public Use
  Company Number: US-EXELIXIS-CABO-23070218

PATIENT
  Age: 37 Year
  Sex: Female

DRUGS (2)
  1. CABOMETYX [Suspect]
     Active Substance: CABOZANTINIB S-MALATE
     Indication: Adrenal gland cancer
     Dosage: 40 MG, QD
     Route: 048
     Dates: start: 202309
  2. CABOMETYX [Suspect]
     Active Substance: CABOZANTINIB S-MALATE
     Dosage: 40 MG,TAKE 1 TABLET BY MOUTH DAILY FOR 5 DAYS ON, THEN 2 DAYS OFF
     Route: 048
     Dates: start: 202309, end: 20231127

REACTIONS (7)
  - Malignant neoplasm progression [Unknown]
  - Oropharyngeal pain [Unknown]
  - Pain [Unknown]
  - Vomiting [Unknown]
  - Drug ineffective [Unknown]
  - Inappropriate schedule of product administration [Unknown]
  - Off label use [Unknown]

NARRATIVE: CASE EVENT DATE: 20230901
